FAERS Safety Report 8079252-5 (Version None)
Quarter: 2012Q1

REPORT INFORMATION
  Report Type: 
  Country: None (occurrence: None)
  Receive Date: 20120128
  Receipt Date: 20110822
  Transmission Date: 20120608
  Serious: No
  Sender: FDA-Public Use
  Company Number: US-ABBOTT-11P-163-0848132-00

PATIENT
  Sex: Female

DRUGS (2)
  1. HUMIRA [Suspect]
  2. HUMIRA [Suspect]
     Indication: CROHN'S DISEASE
     Dosage: INITIAL DOSE
     Dates: start: 20110818, end: 20110818

REACTIONS (3)
  - PAIN [None]
  - INFLUENZA LIKE ILLNESS [None]
  - FATIGUE [None]
